FAERS Safety Report 24356743 (Version 1)
Quarter: 2024Q3

REPORT INFORMATION
  Report Type: Spontaneous
  Country: JP (occurrence: JP)
  Receive Date: 20240924
  Receipt Date: 20240924
  Transmission Date: 20241016
  Serious: Yes (Death, Hospitalization)
  Sender: ROCHE
  Company Number: JP-CHUGAI-2024023361

PATIENT
  Age: 63 Year
  Sex: Female
  Weight: 56.6 kg

DRUGS (3)
  1. AVASTIN [Suspect]
     Active Substance: BEVACIZUMAB
     Indication: Ovarian cancer
     Dosage: UNK
     Route: 042
     Dates: start: 20170316
  2. AVASTIN [Suspect]
     Active Substance: BEVACIZUMAB
     Dosage: UNK
     Route: 042
     Dates: start: 20230830, end: 20240501
  3. GEMCITABINE [Suspect]
     Active Substance: GEMCITABINE
     Indication: Ovarian cancer
     Dosage: UNK
     Route: 042
     Dates: start: 20230830, end: 20240612

REACTIONS (2)
  - Small intestinal perforation [Recovered/Resolved with Sequelae]
  - Ovarian cancer [Fatal]

NARRATIVE: CASE EVENT DATE: 20240621
